FAERS Safety Report 15152974 (Version 13)
Quarter: 2019Q3

REPORT INFORMATION
  Report Type: Spontaneous
  Country: US (occurrence: US)
  Receive Date: 20180717
  Receipt Date: 20190821
  Transmission Date: 20191004
  Serious: Yes (Other)
  Sender: FDA-Public Use
  Company Number: US-PFIZER INC-2018283405

PATIENT
  Age: 68 Year
  Sex: Female
  Weight: 46 kg

DRUGS (8)
  1. IBRANCE [Suspect]
     Active Substance: PALBOCICLIB
     Indication: BREAST CANCER METASTATIC
     Dosage: 125 MG, 1X/DAY (IN THE MORNING WITH FOOD)
     Dates: start: 201806, end: 2018
  2. IBRANCE [Suspect]
     Active Substance: PALBOCICLIB
     Dosage: 125 MG, CYCLIC [DAILY ON FOR 21 DAYS OFF 7 DAYS]
     Route: 048
     Dates: start: 201807
  3. PREDNISONE. [Concomitant]
     Active Substance: PREDNISONE
     Dosage: UNK
  4. IBRANCE [Suspect]
     Active Substance: PALBOCICLIB
     Dosage: 125 MG, CYCLIC (ONCE A DAY FOR 3 WEEKS AND THEN OFF A WEEK)
     Dates: start: 2018, end: 2018
  5. IBRANCE [Suspect]
     Active Substance: PALBOCICLIB
     Dosage: UNK
     Dates: start: 2018, end: 2018
  6. VITAMIN D [Concomitant]
     Active Substance: VITAMIN D NOS
     Dosage: UNK
  7. IBRANCE [Suspect]
     Active Substance: PALBOCICLIB
     Dosage: 125 MG, CYCLIC (THREE WEEKS AND OFF ONE WEEK)
     Route: 048
     Dates: start: 20180703, end: 2018
  8. LETROZOLE. [Concomitant]
     Active Substance: LETROZOLE
     Indication: BREAST CANCER METASTATIC
     Dosage: 2.5 MG, 1X/DAY
     Dates: start: 20180607

REACTIONS (14)
  - Spider vein [Recovered/Resolved]
  - Madarosis [Recovering/Resolving]
  - White blood cell count decreased [Recovering/Resolving]
  - Platelet count decreased [Unknown]
  - Dry eye [Unknown]
  - Corneal oedema [Unknown]
  - Arthralgia [Unknown]
  - Retinal oedema [Unknown]
  - Contusion [Recovered/Resolved]
  - Weight fluctuation [Unknown]
  - Weight decreased [Unknown]
  - Macular oedema [Unknown]
  - Neoplasm progression [Unknown]
  - Vein discolouration [Recovered/Resolved]

NARRATIVE: CASE EVENT DATE: 201807
